FAERS Safety Report 8446271-6 (Version None)
Quarter: 2012Q2

REPORT INFORMATION
  Report Type: 
  Country: None (occurrence: None)
  Receive Date: 20120618
  Receipt Date: 20120606
  Transmission Date: 20120825
  Serious: Yes (Hospitalization)
  Sender: FDA-Public Use
  Company Number: US-CELGENEUS-163-50794-12061368

PATIENT
  Age: 77 Year
  Sex: Female
  Weight: 80 kg

DRUGS (3)
  1. VIDAZA [Suspect]
     Dosage: 75 MILLIGRAM/SQ. METER
     Dates: start: 20120202, end: 20120210
  2. GEMTUZUMAB OZOGAMICIN [Suspect]
     Dosage: 3 MILLIGRAM/SQ. METER
     Route: 041
     Dates: start: 20120202, end: 20120213
  3. HYDROXYUREA [Suspect]
     Dosage: 1500 MILLIGRAM
     Route: 048
     Dates: end: 20120205

REACTIONS (2)
  - TROPONIN I INCREASED [None]
  - TRANSFUSION REACTION [None]
